FAERS Safety Report 25393466 (Version 1)
Quarter: 2025Q2

REPORT INFORMATION
  Report Type: Spontaneous
  Country: US (occurrence: US)
  Receive Date: 20250604
  Receipt Date: 20250604
  Transmission Date: 20250716
  Serious: No
  Sender: ROCHE
  Company Number: US-ROCHE-10000296797

PATIENT
  Sex: Male

DRUGS (15)
  1. XOLAIR [Suspect]
     Active Substance: OMALIZUMAB
     Indication: Idiopathic urticaria
     Route: 058
     Dates: start: 202502
  2. ambien tab [Concomitant]
  3. ASPIRIN [Concomitant]
     Active Substance: ASPIRIN
  4. ATORVASTATIN [Concomitant]
     Active Substance: ATORVASTATIN
  5. CEFPODOXIME [Concomitant]
     Active Substance: CEFPODOXIME
  6. COLCHICINE [Concomitant]
     Active Substance: COLCHICINE
  7. DORZOLAMIDE [Concomitant]
     Active Substance: DORZOLAMIDE
  8. DOXYCYCLINE [Concomitant]
     Active Substance: DOXYCYCLINE
  9. FINASTERIDE [Concomitant]
     Active Substance: FINASTERIDE
  10. FLOMAX [Concomitant]
     Active Substance: TAMSULOSIN HYDROCHLORIDE
  11. LATANOPROST [Concomitant]
     Active Substance: LATANOPROST
  12. MIRTAZAPINE [Concomitant]
     Active Substance: MIRTAZAPINE
  13. PREDNISONE [Concomitant]
     Active Substance: PREDNISONE
  14. PRILOSEC OTC [Concomitant]
     Active Substance: OMEPRAZOLE MAGNESIUM
  15. timolol hemi [Concomitant]

REACTIONS (2)
  - Drug ineffective [Unknown]
  - No adverse event [Unknown]
